FAERS Safety Report 23127876 (Version 1)
Quarter: 2023Q4

REPORT INFORMATION
  Report Type: Other
  Country: KR (occurrence: None)
  Receive Date: 20231031
  Receipt Date: 20231031
  Transmission Date: 20240109
  Serious: Yes (Other)
  Sender: FDA-Public Use
  Company Number: KR-ROCHE-3445706

PATIENT

DRUGS (4)
  1. ATEZOLIZUMAB [Suspect]
     Active Substance: ATEZOLIZUMAB
     Indication: Non-small cell lung cancer
     Route: 065
  2. BEVACIZUMAB [Suspect]
     Active Substance: BEVACIZUMAB
     Indication: Non-small cell lung cancer
     Route: 065
  3. PACLITAXEL [Suspect]
     Active Substance: PACLITAXEL
     Indication: Non-small cell lung cancer
     Route: 065
  4. CARBOPLATIN [Suspect]
     Active Substance: CARBOPLATIN
     Indication: Non-small cell lung cancer
     Route: 065

REACTIONS (27)
  - Neuropathy peripheral [Unknown]
  - Myalgia [Unknown]
  - Rash [Unknown]
  - Fatigue [Unknown]
  - Anaemia [Unknown]
  - Stomatitis [Unknown]
  - Neutropenia [Unknown]
  - Nausea [Unknown]
  - Hypertension [Unknown]
  - Proteinuria [Unknown]
  - Aspartate aminotransferase increased [Unknown]
  - Alanine aminotransferase increased [Unknown]
  - Adrenal insufficiency [Unknown]
  - Hypersensitivity [Unknown]
  - Hypoglycaemia [Unknown]
  - Alopecia [Unknown]
  - Decreased appetite [Unknown]
  - Pruritus [Unknown]
  - Hypothyroidism [Unknown]
  - Amylase [Unknown]
  - Lipase increased [Unknown]
  - Arthralgia [Unknown]
  - Flushing [Unknown]
  - Thrombocytopenia [Unknown]
  - Pneumonitis [Unknown]
  - Thyroid disorder [Unknown]
  - Urticaria [Unknown]
